FAERS Safety Report 4333712-9 (Version None)
Quarter: 2004Q2

REPORT INFORMATION
  Report Type: 
  Country: None (occurrence: None)
  Receive Date: 20040402
  Receipt Date: 20040323
  Transmission Date: 20050107
  Serious: Yes (Other)
  Sender: FDA-Public Use
  Company Number: GB-JNJFOC-20040305565

PATIENT

DRUGS (3)
  1. INFLIXIMAB (INFLIXIMAB, RECOMBINANT) [Suspect]
     Indication: VASCULITIS
     Dosage: 5 MG/KG, INTRAVENOUS
     Route: 042
  2. PREDNISOLONE [Concomitant]
  3. CYCLOPHOSPHAMIDE [Concomitant]

REACTIONS (1)
  - AXILLARY VEIN THROMBOSIS [None]
